FAERS Safety Report 6206173-2 (Version None)
Quarter: 2009Q2

REPORT INFORMATION
  Report Type: 
  Country: None (occurrence: None)
  Receive Date: 20090528
  Receipt Date: 20080609
  Transmission Date: 20091009
  Serious: No
  Sender: FDA-Public Use
  Company Number: US-KINGPHARMUSA00001-K200800661

PATIENT
  Sex: Male

DRUGS (1)
  1. AVINZA [Suspect]
     Indication: BACK PAIN
     Dosage: 30 MG QAM
     Route: 048

REACTIONS (2)
  - INSOMNIA [None]
  - PREMATURE EJACULATION [None]
